FAERS Safety Report 6837875-2 (Version None)
Quarter: 2010Q3

REPORT INFORMATION
  Report Type: 
  Country: None (occurrence: None)
  Receive Date: 20100709
  Receipt Date: 20100622
  Transmission Date: 20110219
  Serious: Yes (Hospitalization)
  Sender: FDA-Public Use
  Company Number: CV20100328

PATIENT
  Age: 78 Year
  Sex: Female

DRUGS (13)
  1. PROPOFOL [Suspect]
     Indication: INDUCTION OF ANAESTHESIA
     Dosage: INTRAVENOUS
     Route: 042
     Dates: start: 20100115
  2. SUFENTA (SUFENTANIL CITRATE) (SUFENTANIL CITRATE) [Concomitant]
  3. ATRACURIUM HOSPIRA (ATRACURIUM) (ATRACURIUM) [Concomitant]
  4. AUGMENTIN (AUGMENTIN) (AUGMENTIN) [Concomitant]
  5. SUPRANE (DESFLURANE) (DESFLURANE) [Concomitant]
  6. NAROPEINE (ROPIVACAINE HYDROCHLORIDE) (ROPIVACAINE HYDROCHLORIDE) [Concomitant]
  7. BETADINE DERMIQUE (POVIDONE-IODINE) (POVIDONE-IODINE) [Concomitant]
  8. NORMACOL LAVENT ADULTES (BACTRIM) (BACTRIM) [Concomitant]
  9. PERFALGAN (PARACETAMOL) (PARACETAMOL) [Concomitant]
  10. ACUPAN (NEFOPAM HYDROCHLORIDE) (NEFOPAM HYDROCHLORIDE) [Concomitant]
  11. DROLEPTAN (DROPERIDOL) (DROPERIDOL) [Concomitant]
  12. EPHEDRINE AGUETTANT (EPHEDRINE HYDROCHLORIDE) (EPHEDRINE HYDROCHLORIDE [Concomitant]
  13. ATROPIN SULFATE RENAUDIN (ATROPINE) (ATROPINE) [Concomitant]

REACTIONS (4)
  - CONDITION AGGRAVATED [None]
  - POST PROCEDURAL COMPLICATION [None]
  - RENAL FAILURE ACUTE [None]
  - RHEUMATOID ARTHRITIS [None]
